FAERS Safety Report 14558155 (Version 1)
Quarter: 2018Q1

REPORT INFORMATION
  Report Type: Spontaneous
  Country: US (occurrence: US)
  Receive Date: 20180221
  Receipt Date: 20180221
  Transmission Date: 20180509
  Serious: No
  Sender: FDA-Public Use
  Company Number: US-PERRIGO-17US002050

PATIENT
  Age: 78 Year
  Sex: Female
  Weight: 70.3 kg

DRUGS (8)
  1. LOPERAMIDE HYDROCHLORIDE. [Suspect]
     Active Substance: LOPERAMIDE HYDROCHLORIDE
     Indication: ANAL INCONTINENCE
     Dosage: 6 MG, QD, PRN
     Route: 048
     Dates: start: 201507
  2. VITAMIN B12 [Concomitant]
     Active Substance: CYANOCOBALAMIN
     Indication: SUPPLEMENTATION THERAPY
     Dosage: UNK
     Route: 048
  3. LACTAID FAST ACT [Concomitant]
     Active Substance: LACTASE
     Indication: LACTOSE INTOLERANCE
     Dosage: UNK
     Route: 048
  4. LOPERAMIDE HYDROCHLORIDE. [Suspect]
     Active Substance: LOPERAMIDE HYDROCHLORIDE
     Indication: DIVERTICULITIS
  5. TYLENOL EXTRA STRENGTH [Concomitant]
     Active Substance: ACETAMINOPHEN
     Indication: PAIN
     Dosage: UNK
     Route: 048
  6. PREDNISONE. [Concomitant]
     Active Substance: PREDNISONE
     Indication: PAIN
     Dosage: UNK
     Route: 048
  7. LOPERAMIDE HYDROCHLORIDE. [Suspect]
     Active Substance: LOPERAMIDE HYDROCHLORIDE
     Indication: IRRITABLE BOWEL SYNDROME
  8. ELIQUIS [Concomitant]
     Active Substance: APIXABAN
     Indication: ANTICOAGULANT THERAPY
     Dosage: UNK
     Route: 048

REACTIONS (2)
  - Off label use [Unknown]
  - Swelling [Unknown]

NARRATIVE: CASE EVENT DATE: 201507
